FAERS Safety Report 7581316-7 (Version None)
Quarter: 2011Q2

REPORT INFORMATION
  Report Type: 
  Country: None (occurrence: None)
  Receive Date: 20110629
  Receipt Date: 20110610
  Transmission Date: 20111010
  Serious: Yes (Hospitalization)
  Sender: FDA-Public Use
  Company Number: CN-ROCHE-785977

PATIENT
  Age: 52 Year
  Sex: Male
  Weight: 60 kg

DRUGS (2)
  1. CAPECITABINE [Suspect]
     Indication: COLORECTAL CANCER
     Route: 048
  2. BEVACIZUMAB [Suspect]
     Indication: COLORECTAL CANCER
     Dosage: REPORTED STRENGTH:100MG/4ML
     Route: 041
     Dates: start: 20110520

REACTIONS (1)
  - GASTROINTESTINAL MUCOSAL EXFOLIATION [None]
